FAERS Safety Report 7930612-X (Version None)
Quarter: 2011Q4

REPORT INFORMATION
  Report Type: 
  Country: None (occurrence: None)
  Receive Date: 20111121
  Receipt Date: 20111114
  Transmission Date: 20120403
  Serious: Yes (Hospitalization, Other)
  Sender: FDA-Public Use
  Company Number: US-PFIZER INC-2011212441

PATIENT
  Age: 78 Year
  Sex: Female

DRUGS (3)
  1. ESCITALOPRAM [Concomitant]
     Indication: DEPRESSION
     Dosage: 20 MG, 1X/DAY
  2. GABAPENTIN [Suspect]
     Indication: NEURALGIA
     Dosage: 600 MG, 2X/DAY
  3. TRAZODONE [Concomitant]
     Indication: INSOMNIA
     Dosage: 100 MG, 1X/DAY

REACTIONS (6)
  - ELECTROENCEPHALOGRAM ABNORMAL [None]
  - DYSPHORIA [None]
  - CONFUSIONAL STATE [None]
  - APHASIA [None]
  - SYMPTOM MASKED [None]
  - AGITATION [None]
